FAERS Safety Report 16523617 (Version 1)
Quarter: 2019Q3

REPORT INFORMATION
  Report Type: Spontaneous
  Country: ES (occurrence: ES)
  Receive Date: 20190702
  Receipt Date: 20190702
  Transmission Date: 20191004
  Serious: Yes (Other)
  Sender: FDA-Public Use
  Company Number: ES-MYLANLABS-2019M1060399

PATIENT

DRUGS (3)
  1. SODIUM NITROPRUSSIDE MYLAN [Suspect]
     Active Substance: SODIUM NITROPRUSSIDE
     Indication: POSTOPERATIVE HYPERTENSION
     Dosage: 1 MICROGRAM/KILOGRAM/MIN
  2. SODIUM NITROPRUSSIDE MYLAN [Suspect]
     Active Substance: SODIUM NITROPRUSSIDE
     Dosage: 5.5 MICROGRAM/KILOGRAM/MIN
  3. MORPHINE [Suspect]
     Active Substance: MORPHINE
     Indication: PRODUCT USED FOR UNKNOWN INDICATION
     Dosage: UNK

REACTIONS (4)
  - Blood pressure increased [Unknown]
  - Toxicity to various agents [Recovering/Resolving]
  - Arrhythmia [Unknown]
  - Somnolence [Recovered/Resolved]
